FAERS Safety Report 4533231-0 (Version None)
Quarter: 2004Q4

REPORT INFORMATION
  Report Type: 
  Country: None (occurrence: None)
  Receive Date: 20041206
  Receipt Date: 20041013
  Transmission Date: 20050328
  Serious: No
  Sender: FDA-Public Use
  Company Number: USA041081019

PATIENT
  Sex: Female
  Weight: 77 kg

DRUGS (5)
  1. CYMBALTA [Suspect]
     Indication: MAJOR DEPRESSION
     Dosage: 30 MG DAY
     Dates: start: 20041001, end: 20041008
  2. EFFEXOR XR [Concomitant]
  3. TRAZADONE (TRAZODONE) [Concomitant]
  4. BUSPAR [Concomitant]
  5. BLOOD PRESSURE MEDICATION [Concomitant]

REACTIONS (2)
  - DIZZINESS [None]
  - NAUSEA [None]
